FAERS Safety Report 5411307-3 (Version None)
Quarter: 2007Q3

REPORT INFORMATION
  Report Type: 
  Country: None (occurrence: None)
  Receive Date: 20070808
  Receipt Date: 20070731
  Transmission Date: 20080115
  Serious: Yes (Death, Other)
  Sender: FDA-Public Use
  Company Number: WAES 0708USA00626

PATIENT
  Age: 82 Year
  Sex: Female

DRUGS (10)
  1. HYZAAR [Suspect]
     Indication: HYPERTENSION
     Dosage: 50-12.5 MG/DAILY PO
     Route: 048
     Dates: start: 20070226, end: 20070523
  2. FOSAMAX [Concomitant]
  3. GASMOTIN [Concomitant]
  4. LUVOX [Concomitant]
  5. MG OXIDE [Concomitant]
  6. SELECTOL [Concomitant]
  7. THYRADIN-S [Concomitant]
  8. VESICARE [Concomitant]
  9. [THERAPY UNSPECIFIED] [Concomitant]
  10. CAMOSTAT MESYLATE [Concomitant]

REACTIONS (5)
  - BLOOD CREATININE INCREASED [None]
  - BLOOD URIC ACID INCREASED [None]
  - CARDIAC FAILURE [None]
  - DEHYDRATION [None]
  - HYPOKALAEMIA [None]
